FAERS Safety Report 12318004 (Version 2)
Quarter: 2016Q2

REPORT INFORMATION
  Report Type: Spontaneous
  Country: US (occurrence: US)
  Receive Date: 20160429
  Receipt Date: 20160516
  Transmission Date: 20160815
  Serious: Yes (Hospitalization, Other)
  Sender: FDA-Public Use
  Company Number: US-MDT-ADR-2016-00777

PATIENT
  Age: 14 Year

DRUGS (5)
  1. LIORESAL [Suspect]
     Active Substance: BACLOFEN
     Dosage: 100 MCG/DAY
     Route: 037
     Dates: start: 20160310
  2. DIAZEPAM. [Suspect]
     Active Substance: DIAZEPAM
  3. LIORESAL [Suspect]
     Active Substance: BACLOFEN
     Dosage: 155MCG/DAY
     Route: 037
  4. LIORESAL [Suspect]
     Active Substance: BACLOFEN
     Dosage: 120MCG/DAY
     Route: 037
  5. LIORESAL [Suspect]
     Active Substance: BACLOFEN
     Dosage: 240.13 MCG/DAY
     Route: 037
     Dates: start: 20160428

REACTIONS (4)
  - Pyrexia [Unknown]
  - Seizure [Unknown]
  - Muscle spasticity [Unknown]
  - Muscle tightness [Unknown]

NARRATIVE: CASE EVENT DATE: 20160405
